FAERS Safety Report 7128184-5 (Version None)
Quarter: 2010Q4

REPORT INFORMATION
  Report Type: 
  Country: None (occurrence: None)
  Receive Date: 20101130
  Receipt Date: 20101125
  Transmission Date: 20110411
  Serious: Yes (Death)
  Sender: FDA-Public Use
  Company Number: PHHY2010FR80478

PATIENT
  Age: 98 Year
  Sex: Female

DRUGS (2)
  1. TAREG [Suspect]
  2. INNOHEP [Suspect]
     Indication: PHLEBITIS SUPERFICIAL
     Dosage: 0.6 ML, DAILY
     Dates: end: 20101020

REACTIONS (4)
  - CEREBRAL HAEMORRHAGE [None]
  - DISTURBANCE IN ATTENTION [None]
  - HEMIPLEGIA [None]
  - PHLEBITIS SUPERFICIAL [None]
